FAERS Safety Report 14293684 (Version 1)
Quarter: 2017Q4

REPORT INFORMATION
  Report Type: Spontaneous
  Country: US (occurrence: US)
  Receive Date: 20171216
  Receipt Date: 20171216
  Transmission Date: 20180321
  Serious: No
  Sender: FDA-Public Use
  Company Number: US-009507513-1712USA005585

PATIENT
  Sex: Female
  Weight: 114.6 kg

DRUGS (1)
  1. NEXPLANON [Suspect]
     Active Substance: ETONOGESTREL
     Dosage: 1 DF, UNK; LEFT ARN
     Route: 059
     Dates: start: 2014, end: 20171208

REACTIONS (6)
  - Weight increased [Unknown]
  - Obesity [Unknown]
  - Complication associated with device [Recovered/Resolved]
  - Difficulty removing drug implant [Recovered/Resolved]
  - Migration of implanted drug [Recovered/Resolved]
  - Incorrect drug administration duration [Unknown]
